FAERS Safety Report 9385380 (Version 1)
Quarter: 2013Q3

REPORT INFORMATION
  Report Type: Spontaneous
  Country: FR (occurrence: None)
  Receive Date: 20130701
  Receipt Date: 20130701
  Transmission Date: 20140515
  Serious: Yes (Hospitalization)
  Sender: FDA-Public Use
  Company Number: 1770479

PATIENT
  Age: 75 Year
  Sex: Male

DRUGS (5)
  1. (CARBOPLATIN) [Suspect]
     Indication: PROSTATE CANCER METASTATIC
     Route: 042
     Dates: start: 20120411, end: 20120503
  2. ETOPOSIDE [Suspect]
     Indication: PROSTATE CANCER METASTATIC
     Route: 042
     Dates: start: 20120411, end: 20120502
  3. (ZOMETA) [Concomitant]
  4. (LEXOMIL) [Concomitant]
  5. (DECAPEPTYL/00486501/) [Concomitant]

REACTIONS (2)
  - Listeriosis [None]
  - Inflammation [None]
